FAERS Safety Report 7523796-9 (Version None)
Quarter: 2011Q2

REPORT INFORMATION
  Report Type: 
  Country: None (occurrence: None)
  Receive Date: 20110603
  Receipt Date: 20110523
  Transmission Date: 20111010
  Serious: Yes (Death)
  Sender: FDA-Public Use
  Company Number: PT-MYLANLABS-2011S1010765

PATIENT
  Age: 49 Year
  Sex: Female

DRUGS (2)
  1. METFORMIN HCL [Suspect]
     Route: 065
  2. FENOFIBRATE [Suspect]
     Route: 065

REACTIONS (2)
  - TOXIC EPIDERMAL NECROLYSIS [None]
  - MULTI-ORGAN FAILURE [None]
